FAERS Safety Report 6114609-0 (Version None)
Quarter: 2009Q1

REPORT INFORMATION
  Report Type: 
  Country: None (occurrence: None)
  Receive Date: 20090311
  Receipt Date: 20080201
  Transmission Date: 20090719
  Serious: No
  Sender: FDA-Public Use
  Company Number: US200802000392

PATIENT
  Sex: Female

DRUGS (1)
  1. GEMZAR [Suspect]
     Dates: start: 20080201, end: 20080201

REACTIONS (6)
  - CHEST DISCOMFORT [None]
  - MEDICATION ERROR [None]
  - NAUSEA [None]
  - PRURITUS [None]
  - SKIN IRRITATION [None]
  - THROAT IRRITATION [None]
